FAERS Safety Report 4504357-2 (Version None)
Quarter: 2004Q4

REPORT INFORMATION
  Report Type: 
  Country: None (occurrence: None)
  Receive Date: 20041115
  Receipt Date: 20041104
  Transmission Date: 20050328
  Serious: Yes (Death)
  Sender: FDA-Public Use
  Company Number: US-2004-031298

PATIENT
  Age: 52 Year
  Sex: Male

DRUGS (17)
  1. MAGNEVIST [Suspect]
     Indication: ANGIOGRAM
     Dosage: 60 ML, 1 DOSE, INTRA-ARTERIAL
     Route: 013
     Dates: start: 20000114, end: 20000114
  2. LASIX [Concomitant]
  3. TOPROL-XL [Concomitant]
  4. DIGOXIN [Concomitant]
  5. IMDUR [Concomitant]
  6. HYDRALAZINE HCL TAB [Concomitant]
  7. NORVASC [Concomitant]
  8. COMBIVENT (IPRATROPIUM BROMIDE) [Concomitant]
  9. HYTRIN [Concomitant]
  10. AMIODARONE HCL [Concomitant]
  11. CLONIDINE [Concomitant]
  12. MAGNESIUM OXIDE (MAGNESIUM OXIDE) [Concomitant]
  13. K-DUR [Concomitant]
  14. COLACE (DOCUSATE SODIUM) [Concomitant]
  15. FERROUS SULFATE TAB [Concomitant]
  16. ATIVAN [Concomitant]
  17. VICODIN [Concomitant]

REACTIONS (13)
  - BLOOD PRESSURE DECREASED [None]
  - CARDIAC ARREST [None]
  - CARDIAC FAILURE CONGESTIVE [None]
  - ELECTROCARDIOGRAM QT CORRECTED INTERVAL PROLONGED [None]
  - HAEMODIALYSIS [None]
  - HEART RATE DECREASED [None]
  - PNEUMONIA [None]
  - PROCEDURAL COMPLICATION [None]
  - RENAL ARTERY STENOSIS [None]
  - RENAL ARTERY THROMBOSIS [None]
  - RENAL FAILURE ACUTE [None]
  - RENAL TUBULAR NECROSIS [None]
  - VENTRICULAR TACHYCARDIA [None]
